FAERS Safety Report 14924845 (Version 1)
Quarter: 2018Q2

REPORT INFORMATION
  Report Type: Spontaneous
  Country: US (occurrence: US)
  Receive Date: 20180522
  Receipt Date: 20180522
  Transmission Date: 20180711
  Serious: No
  Sender: FDA-Public Use
  Company Number: US-MEDIMETRIKS-2017-US-006996

PATIENT
  Sex: Female

DRUGS (1)
  1. SYNALAR [Suspect]
     Active Substance: FLUOCINOLONE ACETONIDE
     Dosage: TWICE DAILY
     Route: 061
     Dates: start: 20170616

REACTIONS (1)
  - Pruritus [Recovered/Resolved]

NARRATIVE: CASE EVENT DATE: 20170616
